FAERS Safety Report 7681003-0 (Version None)
Quarter: 2011Q3

REPORT INFORMATION
  Report Type: 
  Country: None (occurrence: None)
  Receive Date: 20110812
  Receipt Date: 20110808
  Transmission Date: 20111222
  Serious: Yes (Death, Hospitalization)
  Sender: FDA-Public Use
  Company Number: FR-JNJFOC-20110605586

PATIENT
  Sex: Male
  Weight: 60 kg

DRUGS (22)
  1. DURAGESIC-100 [Suspect]
     Route: 062
     Dates: start: 20110518
  2. EFFEXOR [Concomitant]
     Indication: ANTIDEPRESSANT THERAPY
     Route: 048
     Dates: start: 20110518
  3. NORMACOL LAVEMENT [Concomitant]
     Indication: PRODUCT USED FOR UNKNOWN INDICATION
     Route: 054
     Dates: start: 20110518
  4. ABIRATERONE ACETATE [Suspect]
     Route: 048
  5. PERMIXON [Concomitant]
     Indication: PROSTATE CANCER
     Route: 048
     Dates: start: 20110518
  6. POTASSIUM CHLORIDE [Concomitant]
     Indication: PRODUCT USED FOR UNKNOWN INDICATION
     Route: 048
     Dates: start: 20110518
  7. MOVIPREP [Concomitant]
     Indication: LAXATIVE SUPPORTIVE CARE
     Route: 048
     Dates: start: 20110519
  8. BICARBONATE MOUTHWASH [Concomitant]
     Indication: PRODUCT USED FOR UNKNOWN INDICATION
     Route: 002
     Dates: start: 20110606
  9. ABIRATERONE ACETATE [Suspect]
     Indication: PROSTATE CANCER
     Route: 048
     Dates: start: 20110505, end: 20110618
  10. PLAVIX [Concomitant]
     Indication: ANTICOAGULANT THERAPY
     Route: 048
     Dates: start: 20110518
  11. CASODEX [Concomitant]
     Indication: PROSTATE CANCER
     Route: 048
     Dates: start: 20110518
  12. PERISTALTINE [Concomitant]
     Indication: LAXATIVE SUPPORTIVE CARE
     Route: 048
     Dates: start: 20110519
  13. DURAGESIC-100 [Suspect]
     Indication: PAIN
     Route: 062
     Dates: start: 20110518
  14. NEXIUM [Concomitant]
     Indication: GASTROINTESTINAL DISORDER THERAPY
     Route: 042
     Dates: start: 20110518
  15. PREDNISOLONE [Suspect]
     Indication: PROSTATE CANCER
     Route: 048
     Dates: start: 20110518
  16. MORPHINE SULFATE [Concomitant]
     Indication: PAIN
     Dosage: EVERY ONE HOUR
     Route: 048
     Dates: start: 20110518
  17. ACETAMINOPHEN [Concomitant]
     Indication: PAIN
     Route: 042
     Dates: start: 20110614
  18. POTASSIUM CHLORIDE [Concomitant]
     Indication: DEHYDRATION
     Route: 042
     Dates: start: 20110615
  19. DILTIAZEM HCL [Concomitant]
     Indication: HYPERTENSION
     Route: 048
     Dates: start: 20110518
  20. EQUANIL [Concomitant]
     Indication: ANXIOLYTIC THERAPY
     Route: 048
     Dates: start: 20110518
  21. OXYGEN [Concomitant]
     Indication: PRODUCT USED FOR UNKNOWN INDICATION
     Route: 055
     Dates: start: 20110515
  22. GLUCOSE [Concomitant]
     Indication: DEHYDRATION
     Route: 042
     Dates: start: 20110615

REACTIONS (5)
  - DEATH [None]
  - NEOPLASM PROGRESSION [None]
  - STAPHYLOCOCCAL SEPSIS [None]
  - GENERAL PHYSICAL HEALTH DETERIORATION [None]
  - COMA [None]
